FAERS Safety Report 24577088 (Version 1)
Quarter: 2024Q4

REPORT INFORMATION
  Report Type: Spontaneous
  Country: US (occurrence: US)
  Receive Date: 20241104
  Receipt Date: 20241104
  Transmission Date: 20250115
  Serious: No
  Sender: PFIZER
  Company Number: US-PFIZER INC-202400289073

PATIENT
  Age: 54 Year
  Sex: Female
  Weight: 83.6 kg

DRUGS (4)
  1. TUKYSA [Suspect]
     Active Substance: TUCATINIB
     Indication: Breast cancer female
     Dosage: 150 MG TAKE TWO TABLETS BY MOUTH TWICE DAILY. DO NOT CRUSH.
     Route: 048
     Dates: start: 20220416
  2. TUKYSA [Suspect]
     Active Substance: TUCATINIB
     Dosage: ONE PILL A DAY 150 A DAY
  3. XELODA [Suspect]
     Active Substance: CAPECITABINE
     Dosage: 500 3 PILLS IN AM ONE TIME A DAY TWO WEEKS ON, ONE WEEK OFF
  4. HERCEPTIN [Concomitant]
     Active Substance: TRASTUZUMAB
     Dosage: ONE WEEK OFF, EVERY THREE WEEKS
     Dates: start: 20231006

REACTIONS (4)
  - Diarrhoea [Recovered/Resolved]
  - Palmar-plantar erythrodysaesthesia syndrome [Recovered/Resolved]
  - Weight decreased [Unknown]
  - Off label use [Unknown]

NARRATIVE: CASE EVENT DATE: 20220601
